FAERS Safety Report 25671118 (Version 1)
Quarter: 2025Q3

REPORT INFORMATION
  Report Type: Other
  Country: EU (occurrence: EU)
  Receive Date: 20250812
  Receipt Date: 20250812
  Transmission Date: 20251020
  Serious: Yes (Life-Threatening, Hospitalization)
  Sender: ODIN PHARMACEUTICALS
  Company Number: EUA--2025-IT-000003

PATIENT
  Age: 50 Year
  Sex: Male

DRUGS (10)
  1. DEXAMETHASONE SODIUM PHOSPHATE [Suspect]
     Active Substance: DEXAMETHASONE SODIUM PHOSPHATE
     Indication: T-cell lymphoma
     Route: 042
  2. CYCLOPHOSPHAMIDE [Concomitant]
     Active Substance: CYCLOPHOSPHAMIDE
  3. TACROLIMUS [Concomitant]
     Active Substance: TACROLIMUS
  4. BORTEZOMIB [Suspect]
     Active Substance: BORTEZOMIB
     Route: 058
  5. TOLODODEKIN ALFA [Suspect]
     Active Substance: TOLODODEKIN ALFA
     Indication: T-cell lymphoma
     Route: 042
  6. VINCRISTINE [Concomitant]
     Active Substance: VINCRISTINE
     Indication: T-cell lymphoma
  7. DOXORUBICIN HYDROCHLORIDE [Concomitant]
     Active Substance: DOXORUBICIN HYDROCHLORIDE
     Indication: T-cell lymphoma
  8. NELARABINE [Suspect]
     Active Substance: NELARABINE
     Indication: T-cell lymphoma
  9. FLUDARABINE [Concomitant]
     Active Substance: FLUDARABINE PHOSPHATE
  10. MYCOPHENOLATE MOFETIL [Concomitant]
     Active Substance: MYCOPHENOLATE MOFETIL
     Indication: Prophylaxis against graft versus host disease

REACTIONS (8)
  - Product use issue [Unknown]
  - Thrombocytopenia [Recovered/Resolved]
  - Febrile neutropenia [Recovered/Resolved]
  - Bronchopulmonary aspergillosis [Recovered/Resolved]
  - Infusion related reaction [Recovered/Resolved]
  - Rhinitis [Recovered/Resolved]
  - Cough [Recovered/Resolved]
  - Anaemia [Recovered/Resolved]
